FAERS Safety Report 5980192-3 (Version None)
Quarter: 2008Q4

REPORT INFORMATION
  Report Type: 
  Country: None (occurrence: None)
  Receive Date: 20081205
  Receipt Date: 20081201
  Transmission Date: 20090506
  Serious: Yes (Hospitalization)
  Sender: FDA-Public Use
  Company Number: IT-BRISTOL-MYERS SQUIBB COMPANY-14425409

PATIENT
  Age: 35 Year
  Sex: Female

DRUGS (2)
  1. CISPLATIN [Suspect]
     Indication: CERVIX CARCINOMA
     Dosage: ON DAY 1
     Route: 042
     Dates: start: 20050401, end: 20050601
  2. RADIOTHERAPY [Suspect]
     Indication: CERVIX CARCINOMA
     Dosage: PELVICRADIATION(PR) 4 PER WEEK/4 CONSECUTIVE WEEKS-INTRACAVITARY BRACHITHERAPY WITHIN 7 DAYS OF PR
     Dates: start: 20050401, end: 20050601

REACTIONS (2)
  - INTESTINAL PERFORATION [None]
  - INTESTINAL STENOSIS [None]
